FAERS Safety Report 17044956 (Version 18)
Quarter: 2024Q2

REPORT INFORMATION
  Report Type: Spontaneous
  Country: CA (occurrence: CA)
  Receive Date: 20191118
  Receipt Date: 20240528
  Transmission Date: 20240715
  Serious: Yes (Death, Hospitalization, Other)
  Sender: FDA-Public Use
  Company Number: CA-VIIV HEALTHCARE ULC-CA2019GSK105240

PATIENT
  Age: 54 Year
  Sex: Male

DRUGS (74)
  1. BUPROPION [Interacting]
     Active Substance: BUPROPION
     Indication: Bipolar disorder
     Route: 065
  2. BUPROPION [Interacting]
     Active Substance: BUPROPION
     Indication: Depression
     Dosage: BUPROPION HYDROCHLORIDE
     Route: 065
  3. BUPROPION [Interacting]
     Active Substance: BUPROPION
     Indication: Mental disorder
     Route: 048
  4. BUPROPION [Interacting]
     Active Substance: BUPROPION
     Dosage: BUPROPION HYDROCHLORIDE
     Route: 048
  5. BUPROPION [Interacting]
     Active Substance: BUPROPION
     Route: 065
  6. BUPROPION [Interacting]
     Active Substance: BUPROPION
     Route: 048
  7. BUPROPION [Interacting]
     Active Substance: BUPROPION
     Dosage: BUPROPION HYDROCHLORIDE
     Route: 048
  8. QUETIAPINE FUMARATE [Interacting]
     Active Substance: QUETIAPINE FUMARATE
     Indication: Bipolar disorder
     Route: 048
  9. QUETIAPINE FUMARATE [Interacting]
     Active Substance: QUETIAPINE FUMARATE
     Indication: Depression
     Route: 065
  10. QUETIAPINE FUMARATE [Interacting]
     Active Substance: QUETIAPINE FUMARATE
     Indication: Mental disorder
     Route: 048
  11. QUETIAPINE FUMARATE [Interacting]
     Active Substance: QUETIAPINE FUMARATE
     Route: 048
  12. RALTEGRAVIR [Interacting]
     Active Substance: RALTEGRAVIR
     Indication: HIV infection
     Route: 065
  13. RALTEGRAVIR [Interacting]
     Active Substance: RALTEGRAVIR
     Dosage: RALTEGRAVIR?POTASSIUM
     Route: 048
  14. RALTEGRAVIR [Interacting]
     Active Substance: RALTEGRAVIR
     Dosage: RALTEGRAVIR POTASSIUM
     Route: 065
  15. RALTEGRAVIR [Interacting]
     Active Substance: RALTEGRAVIR
     Route: 048
  16. RALTEGRAVIR [Interacting]
     Active Substance: RALTEGRAVIR
     Dosage: RALTEGRAVIR POTASSIUM
     Route: 048
  17. SERTRALINE [Interacting]
     Active Substance: SERTRALINE HYDROCHLORIDE
     Indication: Bipolar disorder
     Route: 048
  18. SERTRALINE [Interacting]
     Active Substance: SERTRALINE HYDROCHLORIDE
     Indication: Mental disorder
     Dosage: SERTRALINE HYDROCHLORIDE
     Route: 065
  19. SERTRALINE [Interacting]
     Active Substance: SERTRALINE HYDROCHLORIDE
     Route: 048
  20. SERTRALINE [Interacting]
     Active Substance: SERTRALINE HYDROCHLORIDE
     Route: 065
  21. VALPROIC ACID [Interacting]
     Active Substance: VALPROIC ACID
     Indication: Bipolar disorder
     Dosage: NOT SPECIFIED
     Route: 065
  22. VALPROIC ACID [Interacting]
     Active Substance: VALPROIC ACID
     Indication: Mental disorder
  23. ZOPICLONE [Interacting]
     Active Substance: ZOPICLONE
     Indication: Bipolar disorder
     Route: 065
  24. ZOPICLONE [Interacting]
     Active Substance: ZOPICLONE
     Indication: Mental disorder
     Route: 048
  25. ZOPICLONE [Interacting]
     Active Substance: ZOPICLONE
     Route: 065
  26. ZOPICLONE [Interacting]
     Active Substance: ZOPICLONE
     Route: 048
  27. CLONAZEPAM [Interacting]
     Active Substance: CLONAZEPAM
     Indication: Bipolar disorder
     Route: 065
  28. CLONAZEPAM [Interacting]
     Active Substance: CLONAZEPAM
     Indication: Depression
     Route: 048
  29. CLONAZEPAM [Interacting]
     Active Substance: CLONAZEPAM
     Indication: Mental disorder
  30. EFAVIRENZ [Interacting]
     Active Substance: EFAVIRENZ
     Indication: HIV infection
     Route: 065
  31. EFAVIRENZ [Interacting]
     Active Substance: EFAVIRENZ
     Route: 065
  32. EFAVIRENZ [Interacting]
     Active Substance: EFAVIRENZ
     Route: 048
  33. KALETRA [Interacting]
     Active Substance: LOPINAVIR\RITONAVIR
     Indication: HIV infection
     Route: 065
  34. KALETRA [Interacting]
     Active Substance: LOPINAVIR\RITONAVIR
     Route: 048
  35. LAMIVUDINE [Interacting]
     Active Substance: LAMIVUDINE
     Indication: HIV infection
     Route: 065
  36. LAMIVUDINE [Interacting]
     Active Substance: LAMIVUDINE
     Route: 048
  37. LAMIVUDINE [Interacting]
     Active Substance: LAMIVUDINE
     Route: 005
  38. SUSTIVA [Interacting]
     Active Substance: EFAVIRENZ
     Indication: HIV infection
     Route: 065
  39. SUSTIVA [Interacting]
     Active Substance: EFAVIRENZ
     Route: 065
  40. SUSTIVA [Interacting]
     Active Substance: EFAVIRENZ
     Route: 048
  41. ATAZANAVIR [Interacting]
     Active Substance: ATAZANAVIR
     Indication: HIV infection
     Route: 065
  42. ATAZANAVIR [Interacting]
     Active Substance: ATAZANAVIR
     Route: 048
  43. ATAZANAVIR [Interacting]
     Active Substance: ATAZANAVIR
     Route: 005
  44. ATAZANAVIR [Interacting]
     Active Substance: ATAZANAVIR
     Dosage: ATAZANAVIR SULFATE
     Route: 065
  45. ATAZANAVIR [Interacting]
     Active Substance: ATAZANAVIR
     Dosage: ATAZANAVIR SULFATE
     Route: 048
  46. ATAZANAVIR [Interacting]
     Active Substance: ATAZANAVIR
     Route: 048
  47. ISENTRESS [Suspect]
     Active Substance: RALTEGRAVIR POTASSIUM
     Indication: HIV infection
     Dosage: ISENTRESS
     Route: 048
  48. ISENTRESS [Suspect]
     Active Substance: RALTEGRAVIR POTASSIUM
     Route: 065
  49. CELECOXIB [Interacting]
     Active Substance: CELECOXIB
     Indication: Psychotic disorder
     Route: 065
  50. CITALOPRAM [Interacting]
     Active Substance: CITALOPRAM\CITALOPRAM HYDROBROMIDE
     Indication: Mental disorder
     Route: 065
  51. CITALOPRAM [Interacting]
     Active Substance: CITALOPRAM\CITALOPRAM HYDROBROMIDE
     Indication: Psychotic disorder
     Dosage: CITALOPRAM HYDROBROMIDE
     Route: 065
  52. LOPINAVIR\RITONAVIR [Suspect]
     Active Substance: LOPINAVIR\RITONAVIR
     Indication: HIV infection
     Route: 065
  53. LOPINAVIR\RITONAVIR [Suspect]
     Active Substance: LOPINAVIR\RITONAVIR
     Route: 048
  54. LOPINAVIR\RITONAVIR [Suspect]
     Active Substance: LOPINAVIR\RITONAVIR
     Route: 048
  55. RISPERIDONE [Interacting]
     Active Substance: RISPERIDONE
     Indication: Depression
     Route: 065
  56. RITONAVIR [Interacting]
     Active Substance: RITONAVIR
     Indication: Depression
     Route: 065
  57. RITONAVIR [Interacting]
     Active Substance: RITONAVIR
     Indication: HIV infection
  58. ENFUVIRTIDE [Suspect]
     Active Substance: ENFUVIRTIDE
     Indication: HIV infection
     Route: 065
  59. TENOFOVIR DISOPROXIL FUMARATE [Suspect]
     Active Substance: TENOFOVIR DISOPROXIL FUMARATE
     Indication: Product used for unknown indication
     Route: 065
  60. VALPROATE SODIUM [Interacting]
     Active Substance: VALPROATE SODIUM
     Indication: Bipolar disorder
     Route: 065
  61. VIREAD [Interacting]
     Active Substance: TENOFOVIR DISOPROXIL FUMARATE
     Indication: Product used for unknown indication
     Route: 065
  62. RIVOTRIL [Interacting]
     Active Substance: CLONAZEPAM
     Indication: Bipolar disorder
     Route: 048
  63. LAMIVUDINE [Interacting]
     Active Substance: LAMIVUDINE
     Indication: HIV infection
     Route: 065
  64. LAMIVUDINE [Interacting]
     Active Substance: LAMIVUDINE
     Route: 048
  65. LAMIVUDINE [Interacting]
     Active Substance: LAMIVUDINE
     Route: 005
  66. LOPINAVIR\RITONAVIR [Concomitant]
     Active Substance: LOPINAVIR\RITONAVIR
     Indication: HIV infection
     Route: 048
  67. ENFUVIRTIDE [Concomitant]
     Active Substance: ENFUVIRTIDE
     Indication: HIV infection
     Route: 065
  68. ENFUVIRTIDE [Concomitant]
     Active Substance: ENFUVIRTIDE
     Route: 058
  69. ENFUVIRTIDE [Concomitant]
     Active Substance: ENFUVIRTIDE
     Route: 065
  70. EFAVIRENZ [Concomitant]
     Active Substance: EFAVIRENZ
     Indication: HIV infection
     Dosage: NOT SPECIFIED
     Route: 065
  71. ENFUVIRTIDE [Concomitant]
     Active Substance: ENFUVIRTIDE
     Indication: Product used for unknown indication
     Route: 065
  72. EMTRIVA [Concomitant]
     Active Substance: EMTRICITABINE
     Indication: Product used for unknown indication
     Route: 065
  73. ATAZANAVIR [Concomitant]
     Active Substance: ATAZANAVIR
     Indication: HIV infection
     Dosage: ATAZANAVIR SULFATE
  74. ATAZANAVIR [Concomitant]
     Active Substance: ATAZANAVIR
     Dosage: ATAZANAVIR

REACTIONS (15)
  - Depression [Fatal]
  - Drug interaction [Fatal]
  - Loss of personal independence in daily activities [Fatal]
  - Intentional product use issue [Fatal]
  - Prescribed overdose [Fatal]
  - Psychiatric decompensation [Unknown]
  - Tearfulness [Unknown]
  - Psychomotor skills impaired [Unknown]
  - Psychotic disorder [Unknown]
  - Depression suicidal [Unknown]
  - Suicidal ideation [Unknown]
  - Paranoia [Unknown]
  - Depressive symptom [Unknown]
  - Anxiety [Unknown]
  - Product use in unapproved indication [Unknown]
